FAERS Safety Report 21530512 (Version 1)
Quarter: 2022Q4

REPORT INFORMATION
  Report Type: Spontaneous
  Country: US (occurrence: None)
  Receive Date: 20221028
  Receipt Date: 20221028
  Transmission Date: 20230112
  Serious: Yes (unspecified)
  Sender: FDA-Public Use
  Company Number: None

PATIENT
  Age: 51 Year
  Sex: Female
  Weight: 64.9 kg

DRUGS (1)
  1. OXALIPLATIN [Suspect]
     Active Substance: OXALIPLATIN
     Indication: Rectal cancer
     Dosage: FREQUENCY : EVERY OTHER WEEK;?
     Route: 041
     Dates: start: 20210324

REACTIONS (7)
  - Cough [None]
  - Erythema [None]
  - Abdominal pain upper [None]
  - Nausea [None]
  - Infusion related reaction [None]
  - Glossodynia [None]
  - Dyspnoea [None]

NARRATIVE: CASE EVENT DATE: 20221025
